FAERS Safety Report 5372132-5 (Version None)
Quarter: 2007Q2

REPORT INFORMATION
  Report Type: 
  Country: None (occurrence: None)
  Receive Date: 20070615
  Receipt Date: 20070226
  Transmission Date: 20071010
  Serious: No
  Sender: FDA-Public Use
  Company Number: SP01145

PATIENT
  Age: 67 Year
  Sex: Male
  Weight: 90.7194 kg

DRUGS (7)
  1. XIFAXAN [Suspect]
     Indication: AMMONIA INCREASED
     Dosage: 600 MG(200 MG, 3 IN 1 D), ORAL
     Route: 048
     Dates: start: 20070120
  2. LACTULOSE [Concomitant]
  3. SERTRALINE [Concomitant]
  4. GABAPENTIN [Concomitant]
  5. POTASSIUM CHLORIDE [Concomitant]
  6. VERAPAMIL HYDROCHLORIDE [Concomitant]
  7. WATER PILL [Concomitant]

REACTIONS (1)
  - DRUG INEFFECTIVE [None]
